FAERS Safety Report 13552881 (Version 3)
Quarter: 2017Q2

REPORT INFORMATION
  Report Type: Spontaneous
  Country: IN (occurrence: IN)
  Receive Date: 20170517
  Receipt Date: 20170630
  Transmission Date: 20170830
  Serious: Yes (Hospitalization)
  Sender: FDA-Public Use
  Company Number: IN-SUN PHARMACEUTICAL INDUSTRIES LTD-2017R1-140675

PATIENT
  Age: 10 Year
  Sex: Female

DRUGS (9)
  1. WYSOLONE [Concomitant]
     Active Substance: PREDNISOLONE
     Indication: ENCEPHALITIS AUTOIMMUNE
     Dosage: 30 MG, QD
     Route: 065
  2. OLANZAPINE. [Suspect]
     Active Substance: OLANZAPINE
     Indication: ENCEPHALITIS AUTOIMMUNE
     Dosage: MORNING
     Route: 065
  3. PAN [Concomitant]
     Indication: PRODUCT USED FOR UNKNOWN INDICATION
     Dosage: 20 MG, QD
     Route: 065
  4. LEVIPIL [Concomitant]
     Active Substance: LEVETIRACETAM
     Indication: ENCEPHALITIS AUTOIMMUNE
     Dosage: 125 MG, BID
     Route: 065
     Dates: start: 201603
  5. UDILIV [Concomitant]
     Indication: ENCEPHALITIS AUTOIMMUNE
     Dosage: 300 MG, BID
     Route: 065
  6. SERENACE [Suspect]
     Active Substance: HALOPERIDOL
     Indication: ENCEPHALITIS AUTOIMMUNE
     Dosage: 0.5 MG, BID
     Route: 065
  7. CARNISURE [Concomitant]
     Indication: ENCEPHALITIS AUTOIMMUNE
     Dosage: 330 MG, BID
     Route: 065
  8. CLONAZEPAM. [Concomitant]
     Active Substance: CLONAZEPAM
     Indication: ENCEPHALITIS AUTOIMMUNE
     Dosage: 0.25 MG, BID
     Route: 065
  9. OLANZAPINE. [Suspect]
     Active Substance: OLANZAPINE
     Dosage: NIGHT
     Route: 065

REACTIONS (3)
  - Liver function test abnormal [Unknown]
  - Extrapyramidal disorder [Unknown]
  - Blood creatine phosphokinase increased [Unknown]
